FAERS Safety Report 5141853-1 (Version None)
Quarter: 2006Q4

REPORT INFORMATION
  Report Type: 
  Country: None (occurrence: None)
  Receive Date: 20061027
  Receipt Date: 20061010
  Transmission Date: 20070319
  Serious: Yes (Other)
  Sender: FDA-Public Use
  Company Number: BE200610001807

PATIENT
  Age: 43 Year
  Sex: Female
  Weight: 55 kg

DRUGS (4)
  1. CYMBALTA [Suspect]
     Indication: DEPRESSION
     Dosage: 60 MG DAILY (1/D), PARENTERAL
     Route: 051
     Dates: start: 20060615
  2. PRAZEPAM [Concomitant]
  3. LEVONORGESTREL [Concomitant]
  4. REMERGON (MIRTAZAPINE) [Concomitant]

REACTIONS (1)
  - VAGINAL HAEMORRHAGE [None]
